FAERS Safety Report 20103877 (Version 1)
Quarter: 2021Q4

REPORT INFORMATION
  Report Type: Report from Study
  Country: CA (occurrence: CA)
  Receive Date: 20211123
  Receipt Date: 20211123
  Transmission Date: 20220303
  Serious: Yes (Other)
  Sender: FDA-Public Use
  Company Number: CA-BAUSCH-BL-2021-037170

PATIENT

DRUGS (3)
  1. CONTRAVE [Suspect]
     Active Substance: BUPROPION HYDROCHLORIDE\NALTREXONE HYDROCHLORIDE
     Indication: Weight control
     Dosage: 90/8 MG, 1TAB/DAY
     Route: 048
     Dates: start: 20210925, end: 2021
  2. CONTRAVE [Suspect]
     Active Substance: BUPROPION HYDROCHLORIDE\NALTREXONE HYDROCHLORIDE
     Dosage: 90/8 MG, 2TAB/DAY
     Route: 048
     Dates: start: 20211002, end: 202110
  3. CONTRAVE [Suspect]
     Active Substance: BUPROPION HYDROCHLORIDE\NALTREXONE HYDROCHLORIDE
     Dosage: 90/8 MG,3TAB/DAY
     Route: 048
     Dates: start: 20211010, end: 20211025

REACTIONS (3)
  - Fall [Recovered/Resolved]
  - Syncope [Recovered/Resolved]
  - Drug titration error [Unknown]

NARRATIVE: CASE EVENT DATE: 20211001
